FAERS Safety Report 6852071-0 (Version None)
Quarter: 2010Q3

REPORT INFORMATION
  Report Type: 
  Country: None (occurrence: None)
  Receive Date: 20100717
  Receipt Date: 20071106
  Transmission Date: 20110219
  Serious: No
  Sender: FDA-Public Use
  Company Number: US-PFIZER INC-2007094413

PATIENT
  Sex: Female
  Weight: 68.181 kg

DRUGS (4)
  1. CHANTIX [Suspect]
     Indication: SMOKING CESSATION THERAPY
     Dates: start: 20071103
  2. SOTALOL [Concomitant]
     Indication: ARRHYTHMIA
  3. BENICAR [Concomitant]
     Indication: BLOOD PRESSURE
  4. COUMADIN [Concomitant]

REACTIONS (1)
  - INSOMNIA [None]
